FAERS Safety Report 21942550 (Version 1)
Quarter: 2023Q1

REPORT INFORMATION
  Report Type: Spontaneous
  Country: IT (occurrence: IT)
  Receive Date: 20230202
  Receipt Date: 20230202
  Transmission Date: 20230418
  Serious: No
  Sender: FDA-Public Use
  Company Number: None

PATIENT
  Age: 54 Year
  Sex: Female

DRUGS (1)
  1. CABOMETYX [Suspect]
     Active Substance: CABOZANTINIB S-MALATE
     Indication: Renal cancer
     Dosage: 60 MG, QD
     Route: 048
     Dates: start: 20210504

REACTIONS (4)
  - Skin depigmentation [Not Recovered/Not Resolved]
  - Erythema [Recovering/Resolving]
  - Skin ulcer [Recovering/Resolving]
  - Diarrhoea [Not Recovered/Not Resolved]
